FAERS Safety Report 4994804-4 (Version None)
Quarter: 2006Q2

REPORT INFORMATION
  Report Type: 
  Country: None (occurrence: None)
  Receive Date: 20060503
  Receipt Date: 20060425
  Transmission Date: 20061013
  Serious: Yes (Other)
  Sender: FDA-Public Use
  Company Number: 2006027283

PATIENT
  Age: 55 Year
  Sex: Male
  Weight: 171.4597 kg

DRUGS (4)
  1. BEXTRA [Suspect]
     Indication: BURSITIS
     Dosage: 20 MG (20 MG, 1 IN 1D), ORAL
     Route: 048
     Dates: start: 20040517, end: 20050401
  2. AVALIDE [Concomitant]
  3. METOPROLOL SUCCINATE [Concomitant]
  4. DOXAZOSIN (DOXAZOSIN) [Concomitant]

REACTIONS (5)
  - DERMATITIS ATOPIC [None]
  - DERMATITIS CONTACT [None]
  - DERMATITIS INFECTED [None]
  - OEDEMA PERIPHERAL [None]
  - SUPERINFECTION [None]
